FAERS Safety Report 8925866 (Version 2)
Quarter: 2012Q4

REPORT INFORMATION
  Report Type: 
  Country: DE (occurrence: DE)
  Receive Date: 20121126
  Receipt Date: 20121210
  Transmission Date: 20130627
  Serious: Yes (Life-Threatening, Other)
  Sender: FDA-Public Use
  Company Number: DE-B.I. PHARMACEUTICALS,INC./RIDGEFIELD-2012-DE-02768DE

PATIENT
  Age: 71 Year
  Sex: Female
  Weight: 90 kg

DRUGS (6)
  1. PRADAXA [Suspect]
     Indication: ATRIAL FIBRILLATION
     Dosage: 300 mg
     Dates: start: 20120901, end: 20121017
  2. PRADAXA [Suspect]
     Indication: ATRIAL FIBRILLATION
  3. QUILONUM RETARD [Suspect]
     Indication: BIPOLAR I DISORDER
     Dosage: 1.5 mg
  4. TRUXAL [Concomitant]
     Indication: SCHIZOAFFECTIVE DISORDER
     Dosage: 50 NR
  5. BISOPROLOL [Concomitant]
     Dosage: 2.5 mg
  6. RAMIPRIL [Concomitant]
     Dosage: 10 mg

REACTIONS (3)
  - Antipsychotic drug level increased [Recovered/Resolved]
  - Bradycardia [Recovered/Resolved]
  - Cognitive disorder [Recovered/Resolved]
